FAERS Safety Report 8880256 (Version 1)
Quarter: 2012Q4

REPORT INFORMATION
  Report Type: 
  Country: CA (occurrence: CA)
  Receive Date: 20121031
  Receipt Date: 20121031
  Transmission Date: 20130627
  Serious: Yes (Other)
  Sender: FDA-Public Use
  Company Number: PHHY2012CA064299

PATIENT
  Age: 9 Year
  Sex: Male

DRUGS (3)
  1. PREDNISONE [Suspect]
     Indication: ASTHMA
     Dosage: 30 mg, daily
     Route: 048
  2. CORTICOSTEROIDS [Suspect]
     Indication: ASTHMA
     Dosage: 800 ug, daily
  3. CORTICOSTEROIDS [Suspect]
     Dosage: 200 ug, daily

REACTIONS (3)
  - Compression fracture [Unknown]
  - Osteoporosis [Unknown]
  - Back pain [Unknown]
